FAERS Safety Report 19969870 (Version 1)
Quarter: 2021Q4

REPORT INFORMATION
  Report Type: Report from Study
  Country: CA (occurrence: CA)
  Receive Date: 20211019
  Receipt Date: 20211019
  Transmission Date: 20220303
  Serious: Yes (Other)
  Sender: FDA-Public Use
  Company Number: CA-UCBSA-2021039839

PATIENT
  Age: 23 Year
  Sex: Female

DRUGS (4)
  1. CERTOLIZUMAB PEGOL [Suspect]
     Active Substance: CERTOLIZUMAB PEGOL
     Indication: Ankylosing spondylitis
     Dosage: 400 MILLIGRAM, EV 2 WEEKS(QOW)
     Route: 058
     Dates: start: 20210729, end: 2021
  2. CERTOLIZUMAB PEGOL [Suspect]
     Active Substance: CERTOLIZUMAB PEGOL
     Dosage: 200 MILLIGRAM, EV 2 WEEKS(QOW)
     Route: 058
     Dates: start: 2021, end: 2021
  3. PREDNISONE [Concomitant]
     Active Substance: PREDNISONE
     Indication: Product used for unknown indication
     Dosage: UNK
  4. FLUCONAZOLE [Concomitant]
     Active Substance: FLUCONAZOLE
     Indication: Antifungal treatment
     Dosage: UNK
     Dates: start: 20210909

REACTIONS (17)
  - Fatigue [Unknown]
  - Diarrhoea haemorrhagic [Unknown]
  - Nausea [Unknown]
  - Blood pressure decreased [Unknown]
  - Dizziness [Unknown]
  - Flushing [Unknown]
  - Muscle spasms [Unknown]
  - Abdominal pain [Unknown]
  - Burning sensation [Unknown]
  - Glossodynia [Unknown]
  - Eating disorder [Unknown]
  - Tongue discolouration [Unknown]
  - Dysuria [Unknown]
  - Ankylosing spondylitis [Unknown]
  - Abdominal discomfort [Unknown]
  - Abdominal tenderness [Unknown]
  - Decreased appetite [Unknown]

NARRATIVE: CASE EVENT DATE: 20210729
